FAERS Safety Report 4520714-2 (Version None)
Quarter: 2004Q4

REPORT INFORMATION
  Report Type: 
  Country: None (occurrence: None)
  Receive Date: 20041207
  Receipt Date: 20041201
  Transmission Date: 20050328
  Serious: Yes (Hospitalization, Disabling)
  Sender: FDA-Public Use
  Company Number: US-MERCK-0412USA00250

PATIENT
  Age: 49 Year
  Sex: Male

DRUGS (1)
  1. VIOXX [Suspect]
     Route: 048
     Dates: start: 20001229, end: 20040101

REACTIONS (4)
  - ARTHROPATHY [None]
  - CORONARY ARTERY DISEASE [None]
  - HERNIA [None]
  - ROTATOR CUFF SYNDROME [None]
